FAERS Safety Report 16986704 (Version 1)
Quarter: 2019Q4

REPORT INFORMATION
  Report Type: Spontaneous
  Country: US (occurrence: US)
  Receive Date: 20191007
  Receipt Date: 20191007
  Transmission Date: 20200122
  Serious: Yes (Other)
  Sender: FDA-Public Use
  Company Number: None

PATIENT
  Age: 44 Year
  Sex: Female
  Weight: 63 kg

DRUGS (3)
  1. LEAF AND FLOWER CBD SHAMPOO [Suspect]
     Active Substance: CANNABIDIOL\HERBALS
     Indication: HAIR INJURY
     Dates: start: 20191005, end: 20191006
  2. LEAF AND FLOWER CBD CONDITIONER [Suspect]
     Active Substance: CANNABIDIOL\HERBALS
     Indication: HAIR INJURY
     Dates: start: 20191005, end: 20191006
  3. LEVOTHYROXINE. [Concomitant]
     Active Substance: LEVOTHYROXINE

REACTIONS (8)
  - Headache [None]
  - Feeling abnormal [None]
  - Body temperature decreased [None]
  - Pain [None]
  - Joint stiffness [None]
  - Lymphadenopathy [None]
  - Dizziness [None]
  - Arthralgia [None]

NARRATIVE: CASE EVENT DATE: 20191006
